FAERS Safety Report 5174712-9 (Version None)
Quarter: 2006Q4

REPORT INFORMATION
  Report Type: 
  Country: None (occurrence: None)
  Receive Date: 20061214
  Receipt Date: 20060830
  Transmission Date: 20070319
  Serious: Yes (Hospitalization)
  Sender: FDA-Public Use
  Company Number: JP-ABBOTT-06P-087-0342798-00

PATIENT
  Sex: Male
  Weight: 59.5 kg

DRUGS (6)
  1. CEFZON [Suspect]
     Indication: PYREXIA
     Route: 048
     Dates: start: 20060808, end: 20060810
  2. CEFZON [Suspect]
     Indication: INFLAMMATION
  3. CIPROFLOXACIN HYDROCHLORIDE [Suspect]
     Indication: DIVERTICULITIS
     Route: 042
     Dates: start: 20060812, end: 20060814
  4. DISOPYRAMIDE [Concomitant]
     Indication: DRUG USE FOR UNKNOWN INDICATION
     Route: 048
  5. ACETAMINOPHEN [Concomitant]
     Indication: DRUG USE FOR UNKNOWN INDICATION
     Dates: start: 20050808
  6. LOXOPROFEN SODIUM [Concomitant]
     Indication: DRUG USE FOR UNKNOWN INDICATION
     Dates: start: 20060813

REACTIONS (8)
  - ATRIAL FIBRILLATION [None]
  - C-REACTIVE PROTEIN INCREASED [None]
  - ERYTHEMA [None]
  - INFLAMMATION [None]
  - PLEURAL EFFUSION [None]
  - PRURITUS GENERALISED [None]
  - RASH [None]
  - WHITE BLOOD CELL COUNT INCREASED [None]
